FAERS Safety Report 9462869 (Version 1)
Quarter: 2013Q3

REPORT INFORMATION
  Report Type: Spontaneous
  Country: PL (occurrence: None)
  Receive Date: 20130814
  Receipt Date: 20130814
  Transmission Date: 20140515
  Serious: Yes (Hospitalization)
  Sender: FDA-Public Use
  Company Number: 2013GMK006469

PATIENT
  Sex: 0

DRUGS (1)
  1. LAMOTRIGINE [Suspect]

REACTIONS (12)
  - Atrioventricular block [None]
  - Hypokalaemia [None]
  - Respiratory depression [None]
  - Epilepsy [None]
  - Toxicity to various agents [None]
  - Arrhythmia [None]
  - Ventricular fibrillation [None]
  - Coma [None]
  - Cardiogenic shock [None]
  - Rhabdomyolysis [None]
  - Hypokalaemia [None]
  - Suicide attempt [None]
